FAERS Safety Report 20529935 (Version 7)
Quarter: 2023Q4

REPORT INFORMATION
  Report Type: Report from Study
  Country: US (occurrence: US)
  Receive Date: 20220301
  Receipt Date: 20231129
  Transmission Date: 20240109
  Serious: Yes (Other)
  Sender: FDA-Public Use
  Company Number: US-ABBVIE-22K-163-4294407-00

PATIENT
  Sex: Female

DRUGS (2)
  1. RINVOQ [Suspect]
     Active Substance: UPADACITINIB
     Indication: Rheumatoid arthritis
     Route: 048
  2. RINVOQ [Suspect]
     Active Substance: UPADACITINIB
     Indication: Rheumatoid arthritis
     Route: 048
     Dates: start: 20211103

REACTIONS (14)
  - Hip fracture [Recovering/Resolving]
  - Back pain [Unknown]
  - Fall [Recovering/Resolving]
  - Blindness unilateral [Not Recovered/Not Resolved]
  - Arthropathy [Unknown]
  - COVID-19 [Recovered/Resolved]
  - COVID-19 [Recovered/Resolved]
  - Cerebrovascular accident [Unknown]
  - Arthralgia [Unknown]
  - Pain in extremity [Recovered/Resolved]
  - Contusion [Recovered/Resolved]
  - Papule [Unknown]
  - Gait disturbance [Unknown]
  - Spinal fracture [Unknown]

NARRATIVE: CASE EVENT DATE: 20210101
